FAERS Safety Report 16359093 (Version 1)
Quarter: 2019Q2

REPORT INFORMATION
  Report Type: Spontaneous
  Country: US (occurrence: US)
  Receive Date: 20190527
  Receipt Date: 20190527
  Transmission Date: 20190711
  Serious: Yes (Hospitalization, Other)
  Sender: FDA-Public Use
  Company Number: US-SA-2019SA138228

PATIENT
  Sex: Female
  Weight: 11.4 kg

DRUGS (1)
  1. LUMIZYME [Suspect]
     Active Substance: ALGLUCOSIDASE ALFA
     Dosage: 17.5 MG/KG, QW
     Route: 041

REACTIONS (2)
  - Hospitalisation [Unknown]
  - Product use issue [Unknown]
